FAERS Safety Report 18571987 (Version 1)
Quarter: 2020Q4

REPORT INFORMATION
  Report Type: Report from Study
  Country: IN (occurrence: IN)
  Receive Date: 20201202
  Receipt Date: 20201202
  Transmission Date: 20210114
  Serious: Yes (Other)
  Sender: FDA-Public Use
  Company Number: NVSC2020IN113968

PATIENT
  Age: 60 Year
  Sex: Female

DRUGS (3)
  1. REVOLADE [Suspect]
     Active Substance: ELTROMBOPAG
     Dosage: 100 MG, QD
     Route: 048
  2. REVOLADE [Suspect]
     Active Substance: ELTROMBOPAG
     Dosage: 25 MG, QD
     Route: 065
     Dates: start: 20200422
  3. REVOLADE [Suspect]
     Active Substance: ELTROMBOPAG
     Indication: APLASTIC ANAEMIA
     Dosage: 50 MG, QD
     Route: 065
     Dates: start: 20190216, end: 20200421

REACTIONS (3)
  - Platelet count decreased [Unknown]
  - Product prescribing error [Unknown]
  - White blood cell count decreased [Not Recovered/Not Resolved]
